FAERS Safety Report 19828189 (Version 2)
Quarter: 2021Q4

REPORT INFORMATION
  Report Type: Spontaneous
  Country: FR (occurrence: FR)
  Receive Date: 20210914
  Receipt Date: 20211028
  Transmission Date: 20220303
  Serious: No
  Sender: FDA-Public Use
  Company Number: FR-PFIZER INC-202101062295

PATIENT
  Age: 40 Year
  Sex: Male

DRUGS (1)
  1. SOMAVERT [Suspect]
     Active Substance: PEGVISOMANT
     Dosage: 30 MG, ONCE A DAY

REACTIONS (2)
  - Device issue [Unknown]
  - Device difficult to use [Unknown]
